FAERS Safety Report 24456563 (Version 2)
Quarter: 2024Q4

REPORT INFORMATION
  Report Type: Report from Study
  Country: US (occurrence: US)
  Receive Date: 20241017
  Receipt Date: 20241018
  Transmission Date: 20250115
  Serious: No
  Sender: ROCHE
  Company Number: US-ROCHE-3512471

PATIENT
  Age: 82 Year
  Sex: Female
  Weight: 86.18 kg

DRUGS (16)
  1. RITUXAN [Suspect]
     Active Substance: RITUXIMAB
     Indication: Pemphigoid
     Route: 042
     Dates: start: 2023, end: 2023
  2. RITUXAN [Suspect]
     Active Substance: RITUXIMAB
     Indication: Rash
     Route: 042
  3. FELODIPINE [Concomitant]
     Active Substance: FELODIPINE
  4. CLONIDINE [Concomitant]
     Active Substance: CLONIDINE
  5. MINOXIDIL [Concomitant]
     Active Substance: MINOXIDIL
  6. FLUOCINONIDE [Concomitant]
     Active Substance: FLUOCINONIDE
  7. HYDROCORTISONE [Concomitant]
     Active Substance: HYDROCORTISONE
  8. KERASAL [Concomitant]
     Active Substance: MENTHOL
  9. LYSINE [Concomitant]
     Active Substance: LYSINE
  10. MAGNESIUM [Concomitant]
     Active Substance: MAGNESIUM
  11. POTASSIUM [Concomitant]
     Active Substance: POTASSIUM
  12. TRIAMCINOLONE [Concomitant]
     Active Substance: TRIAMCINOLONE
  13. ZYRTEC [Concomitant]
     Active Substance: CETIRIZINE HYDROCHLORIDE
  14. ZINC [Concomitant]
     Active Substance: ZINC
  15. VITAMIN D3 [Concomitant]
     Active Substance: CHOLECALCIFEROL
  16. VITAMIN C [Concomitant]
     Active Substance: ASCORBIC ACID

REACTIONS (2)
  - Off label use [Unknown]
  - No adverse event [Unknown]

NARRATIVE: CASE EVENT DATE: 20230101
